FAERS Safety Report 24875997 (Version 2)
Quarter: 2025Q1

REPORT INFORMATION
  Report Type: Spontaneous
  Country: US (occurrence: US)
  Receive Date: 20250123
  Receipt Date: 20250301
  Transmission Date: 20250409
  Serious: No
  Sender: SANOFI AVENTIS
  Company Number: US-SA-2025SA020443

PATIENT
  Age: 4 Year
  Sex: Male

DRUGS (2)
  1. ALPROLIX [Suspect]
     Active Substance: EFTRENONACOG ALFA
     Route: 042
  2. AMOXICILLIN [Suspect]
     Active Substance: AMOXICILLIN
     Indication: Ear infection
     Route: 065

REACTIONS (6)
  - Ear infection [Unknown]
  - Influenza [Unknown]
  - Swelling face [Unknown]
  - Drug hypersensitivity [Unknown]
  - Erythema [Unknown]
  - Joint swelling [Unknown]

NARRATIVE: CASE EVENT DATE: 20241225
